FAERS Safety Report 11747466 (Version 1)
Quarter: 2015Q4

REPORT INFORMATION
  Report Type: Spontaneous
  Country: US (occurrence: US)
  Receive Date: 20151117
  Receipt Date: 20151117
  Transmission Date: 20160304
  Serious: Yes (Hospitalization)
  Sender: FDA-Public Use
  Company Number: US-TEVA-608533USA

PATIENT
  Age: 49 Year
  Sex: Female

DRUGS (18)
  1. WARFARIN [Suspect]
     Active Substance: WARFARIN
     Indication: ANTICOAGULANT THERAPY
     Dosage: 4 MILLIGRAM DAILY; ADJUSTED TO MAINTAIN AN INR OF 2.5-3.5
     Route: 065
  2. FERROUS SULFATE [Concomitant]
     Active Substance: FERROUS SULFATE\FERROUS SULFATE, DRIED
     Dosage: 325 MILLIGRAM DAILY;
     Route: 065
  3. METOPROLOL TARTRATE. [Concomitant]
     Active Substance: METOPROLOL TARTRATE
     Dosage: 100 MILLIGRAM DAILY;
     Route: 065
  4. GUAIFENESIN. [Concomitant]
     Active Substance: GUAIFENESIN
     Indication: NASOPHARYNGITIS
     Route: 065
  5. LOMITAPIDE [Interacting]
     Active Substance: LOMITAPIDE MESYLATE
     Indication: TYPE IIA HYPERLIPIDAEMIA
     Route: 065
     Dates: start: 2008
  6. LOMITAPIDE [Interacting]
     Active Substance: LOMITAPIDE MESYLATE
     Indication: TYPE IIA HYPERLIPIDAEMIA
     Route: 065
     Dates: start: 2008
  7. LOMITAPIDE [Interacting]
     Active Substance: LOMITAPIDE MESYLATE
     Indication: TYPE IIA HYPERLIPIDAEMIA
     Route: 065
     Dates: start: 200803
  8. ROBITUSSIN (GUAIFENESIN) [Interacting]
     Active Substance: GUAIFENESIN
     Indication: NASOPHARYNGITIS
     Route: 065
  9. IBUPROFEN. [Concomitant]
     Active Substance: IBUPROFEN
     Indication: NASOPHARYNGITIS
     Route: 065
  10. COLESEVELAM [Concomitant]
     Active Substance: COLESEVELAM
     Indication: TYPE IIA HYPERLIPIDAEMIA
     Dosage: 3750 MILLIGRAM DAILY;
     Route: 065
  11. LOMITAPIDE [Interacting]
     Active Substance: LOMITAPIDE MESYLATE
     Indication: TYPE IIA HYPERLIPIDAEMIA
     Route: 065
     Dates: start: 2008
  12. LOMITAPIDE [Interacting]
     Active Substance: LOMITAPIDE MESYLATE
     Indication: TYPE IIA HYPERLIPIDAEMIA
     Route: 065
     Dates: start: 2008
  13. ROSUVASTATIN [Concomitant]
     Active Substance: ROSUVASTATIN
     Indication: TYPE IIA HYPERLIPIDAEMIA
     Dosage: 40 MILLIGRAM DAILY;
     Route: 065
  14. EZETIMIBE. [Concomitant]
     Active Substance: EZETIMIBE
     Indication: TYPE IIA HYPERLIPIDAEMIA
     Dosage: 10 MILLIGRAM DAILY;
     Route: 065
  15. PROGESTERONE. [Concomitant]
     Active Substance: PROGESTERONE
     Indication: MENORRHAGIA
     Route: 065
  16. LOMITAPIDE [Interacting]
     Active Substance: LOMITAPIDE MESYLATE
     Indication: TYPE IIA HYPERLIPIDAEMIA
     Dosage: 0.03 MG/KG/DAY, TITRATED EVERY 4 WEEKS UP TO 1 MG/KG/DAY
     Route: 065
     Dates: start: 2003
  17. VICKS NYQUIL [Interacting]
     Active Substance: ACETAMINOPHEN\DEXTROMETHORPHAN HYDROBROMIDE\DOXYLAMINE SUCCINATE
     Indication: NASOPHARYNGITIS
     Route: 065
  18. ASPIRIN. [Concomitant]
     Active Substance: ASPIRIN
     Dosage: 81 MILLIGRAM DAILY;
     Route: 065

REACTIONS (6)
  - Liver function test abnormal [Unknown]
  - Drug interaction [Unknown]
  - Haemorrhage [Unknown]
  - Subdural haematoma [Recovered/Resolved]
  - Cerebrovascular accident [Unknown]
  - Nausea [Unknown]
